FAERS Safety Report 15207197 (Version 3)
Quarter: 2018Q3

REPORT INFORMATION
  Report Type: Spontaneous
  Country: US (occurrence: US)
  Receive Date: 20180727
  Receipt Date: 20180814
  Transmission Date: 20181010
  Serious: Yes (Other)
  Sender: FDA-Public Use
  Company Number: US-BAYER-2018-136425

PATIENT
  Age: 21 Year
  Sex: Female

DRUGS (1)
  1. MIRENA [Suspect]
     Active Substance: LEVONORGESTREL
     Dosage: 20 MCG/24HR, CONT
     Route: 015
     Dates: start: 20170713, end: 20180709

REACTIONS (8)
  - Drug ineffective [None]
  - Device difficult to use [None]
  - Complication of device removal [None]
  - Uterine perforation [None]
  - Device breakage [None]
  - Abortion spontaneous [None]
  - Pregnancy with contraceptive device [None]
  - Pelvic pain [None]

NARRATIVE: CASE EVENT DATE: 201712
